FAERS Safety Report 12006017 (Version 1)
Quarter: 2016Q1

REPORT INFORMATION
  Report Type: Report from Study
  Country: CA (occurrence: CA)
  Receive Date: 20160205
  Receipt Date: 20160205
  Transmission Date: 20160526
  Serious: Yes (Other)
  Sender: FDA-Public Use
  Company Number: CA-BRISTOL-MYERS SQUIBB COMPANY-17270828

PATIENT
  Age: 33 Year
  Sex: Female
  Weight: 76 kg

DRUGS (2)
  1. LEFLUNOMIDE. [Concomitant]
     Active Substance: LEFLUNOMIDE
     Indication: PRODUCT USED FOR UNKNOWN INDICATION
     Route: 065
  2. ABATACEPT [Suspect]
     Active Substance: ABATACEPT
     Indication: RHEUMATOID ARTHRITIS
     Dosage: 750 MG, Q4WK
     Route: 042
     Dates: start: 20111213

REACTIONS (4)
  - Pregnancy on oral contraceptive [Recovered/Resolved]
  - Live birth [Unknown]
  - Caesarean section [Unknown]
  - Bladder disorder [Recovered/Resolved]

NARRATIVE: CASE EVENT DATE: 20130101
